FAERS Safety Report 19065136 (Version 1)
Quarter: 2021Q1

REPORT INFORMATION
  Report Type: Spontaneous
  Country: DE (occurrence: DE)
  Receive Date: 20210327
  Receipt Date: 20210327
  Transmission Date: 20210420
  Serious: Yes (Other)
  Sender: FDA-Public Use
  Company Number: DE-DRREDDYS-GER/GER/21/0133024

PATIENT
  Age: 1 Day
  Sex: Female
  Weight: 3.51 kg

DRUGS (9)
  1. FRISIUM [Suspect]
     Active Substance: CLOBAZAM
     Indication: PRODUCT USED FOR UNKNOWN INDICATION
     Dosage: 20 [MG/D (BIS 5) ]/ FIRST 5 MG/, THEN 10 MG/D. FROM GW 35: 20 MG/D
     Route: 064
     Dates: start: 20190801, end: 20190826
  2. LEVOTHYROXINE SODIUM. [Concomitant]
     Active Substance: LEVOTHYROXINE SODIUM
     Indication: PRODUCT USED FOR UNKNOWN INDICATION
     Dosage: 50 [MICROG/D ]
     Route: 064
     Dates: start: 20181209, end: 20190826
  3. AGYRAX [Concomitant]
     Active Substance: MECLIZINE HYDROCHLORIDE
     Indication: PRODUCT USED FOR UNKNOWN INDICATION
     Dosage: 100 [MG/D ]
     Route: 064
  4. CIMZIA [Concomitant]
     Active Substance: CERTOLIZUMAB PEGOL
     Indication: PRODUCT USED FOR UNKNOWN INDICATION
     Dosage: 200 [MG/2WK ]
     Route: 064
     Dates: start: 20181209, end: 20190826
  5. IBUPROFEN. [Concomitant]
     Active Substance: IBUPROFEN
     Indication: PRODUCT USED FOR UNKNOWN INDICATION
     Dosage: IN TOTAL, 10 TABLES DURING PREGNANCY
     Route: 064
  6. PARACETAMOL [Concomitant]
     Active Substance: ACETAMINOPHEN
     Indication: PRODUCT USED FOR UNKNOWN INDICATION
     Dosage: 500 [MG/D (BEI BEDARF) ]/ IN TOTAL, NO MORE HAN 25 TABLETS DURING THE WHOLE PREGNANCY
     Route: 064
  7. PREDNISOLON [Concomitant]
     Active Substance: PREDNISOLONE
     Indication: PRODUCT USED FOR UNKNOWN INDICATION
     Dosage: 10 [MG/D (BIS 5 MG/D) ]
     Route: 064
     Dates: start: 20181209, end: 20190826
  8. PANTOPRAZOLE [Concomitant]
     Active Substance: PANTOPRAZOLE
     Indication: PRODUCT USED FOR UNKNOWN INDICATION
     Dosage: 40 [MG/D (BEI BEDARF) ]
     Route: 064
  9. LAMOTRIGINE. [Suspect]
     Active Substance: LAMOTRIGINE
     Indication: PRODUCT USED FOR UNKNOWN INDICATION
     Dosage: 2000 MG/D (UP TO 450)
     Route: 064
     Dates: start: 20181209, end: 20190826

REACTIONS (3)
  - Floppy infant [Recovered/Resolved]
  - Foetal exposure during pregnancy [Unknown]
  - Myoclonus [Unknown]

NARRATIVE: CASE EVENT DATE: 20190826
